FAERS Safety Report 9612644 (Version 1)
Quarter: 2013Q4

REPORT INFORMATION
  Report Type: Spontaneous
  Country: US (occurrence: US)
  Receive Date: 20131010
  Receipt Date: 20131010
  Transmission Date: 20140711
  Serious: Yes (Hospitalization, Other)
  Sender: FDA-Public Use
  Company Number: US-PFIZER INC-2013285343

PATIENT
  Age: 51 Year
  Sex: Male

DRUGS (1)
  1. REVATIO [Suspect]
     Indication: CARDIAC FAILURE CONGESTIVE
     Dosage: 20 MG, 3X/DAY
     Dates: start: 20130703

REACTIONS (4)
  - Loss of consciousness [Unknown]
  - Head injury [Unknown]
  - Hypotension [Unknown]
  - Off label use [Unknown]
